FAERS Safety Report 5975617-3 (Version None)
Quarter: 2008Q4

REPORT INFORMATION
  Report Type: 
  Country: None (occurrence: None)
  Receive Date: 20081128
  Receipt Date: 20081110
  Transmission Date: 20090506
  Serious: Yes (Hospitalization)
  Sender: FDA-Public Use
  Company Number: 8039780

PATIENT
  Age: 2 Month
  Sex: Male

DRUGS (3)
  1. PREDNISOLONE [Suspect]
     Indication: BENIGN SOFT TISSUE NEOPLASM
  2. ORAL CORTICOSTEROIDS [Concomitant]
  3. VINBLASTINE SULFATE [Concomitant]

REACTIONS (3)
  - IDIOSYNCRATIC DRUG REACTION [None]
  - IRRITABILITY [None]
  - NEUTROPENIA [None]
